FAERS Safety Report 11915833 (Version 1)
Quarter: 2016Q1

REPORT INFORMATION
  Report Type: Spontaneous
  Country: US (occurrence: None)
  Receive Date: 20160113
  Receipt Date: 20160113
  Transmission Date: 20160526
  Serious: Yes (Hospitalization)
  Sender: FDA-Public Use
  Company Number: None

PATIENT
  Age: 68 Year
  Sex: Female
  Weight: 92.2 kg

DRUGS (1)
  1. DICLOFENAC [Suspect]
     Active Substance: DICLOFENAC
     Indication: PAIN
     Route: 048
     Dates: start: 20150403, end: 20151203

REACTIONS (4)
  - Transaminases increased [None]
  - Hepatic enzyme increased [None]
  - Jaundice [None]
  - Liver injury [None]

NARRATIVE: CASE EVENT DATE: 20151203
